FAERS Safety Report 20806657 (Version 1)
Quarter: 2022Q2

REPORT INFORMATION
  Report Type: Spontaneous
  Country: FR (occurrence: FR)
  Receive Date: 20220510
  Receipt Date: 20220510
  Transmission Date: 20220721
  Serious: Yes (Other)
  Sender: FDA-Public Use
  Company Number: FR-LUPIN PHARMACEUTICALS INC.-2022-06724

PATIENT
  Age: 46 Year
  Sex: Female

DRUGS (6)
  1. CALCIUM [Suspect]
     Active Substance: CALCIUM
     Indication: Hypoparathyroidism
     Dosage: 2 GRAM, QID
     Route: 048
  2. ROCALTROL [Suspect]
     Active Substance: CALCITRIOL
     Indication: Hypoparathyroidism
     Dosage: 1 MCG, TID (1 MICROG TIMES 3, DIVIDED INTO THREE EQUAL DOSES  )
     Route: 065
  3. CALCIUM GLUCONATE [Suspect]
     Active Substance: CALCIUM GLUCONATE
     Indication: Hypoparathyroidism
     Dosage: UNK (INFUSION)
     Route: 042
  4. TERIPARATIDE [Suspect]
     Active Substance: TERIPARATIDE
     Indication: Hypoparathyroidism
     Dosage: 20 MICROGRAM, QD (0.5 UNIT INTERVAL)
     Route: 058
  5. TERIPARATIDE [Suspect]
     Active Substance: TERIPARATIDE
     Dosage: UNK, (CONTINUOUS TERIPARATIDE INFUSION USING THE OMNIPOD PUMP)
     Route: 065
     Dates: start: 202103
  6. LEVOTHYROXINE [Concomitant]
     Active Substance: LEVOTHYROXINE
     Indication: Product used for unknown indication
     Dosage: 137 MICROGRAM, QD
     Route: 065

REACTIONS (1)
  - Drug ineffective [Unknown]
